FAERS Safety Report 7365750-6 (Version None)
Quarter: 2011Q1

REPORT INFORMATION
  Report Type: 
  Country: None (occurrence: None)
  Receive Date: 20110322
  Receipt Date: 20110321
  Transmission Date: 20110831
  Serious: No
  Sender: FDA-Public Use
  Company Number: US-PFIZER INC-2011062290

PATIENT
  Sex: Female
  Weight: 68 kg

DRUGS (3)
  1. ZOLOFT [Suspect]
     Indication: ANXIETY
     Dosage: 50 MG DAILY
     Dates: start: 20020101
  2. CELEXA [Suspect]
     Indication: ANXIETY
     Dosage: UNK
     Route: 048
     Dates: start: 20110316
  3. ZOLOFT [Suspect]
     Dosage: 150 MG, DAILY

REACTIONS (2)
  - ANXIETY [None]
  - INSOMNIA [None]
